FAERS Safety Report 23421033 (Version 1)
Quarter: 2024Q1

REPORT INFORMATION
  Report Type: Spontaneous
  Country: IL (occurrence: IL)
  Receive Date: 20240119
  Receipt Date: 20240119
  Transmission Date: 20240409
  Serious: Yes (Other)
  Sender: FDA-Public Use
  Company Number: IL-EPICPHARMA-IL-2024EPCLIT00069

PATIENT
  Age: 38 Year
  Sex: Male

DRUGS (4)
  1. DORZOLAMIDE HYDROCHLORIDE AND TIMOLOL MALEATE [Suspect]
     Active Substance: DORZOLAMIDE HYDROCHLORIDE\TIMOLOL MALEATE
     Indication: Glaucomatocyclitic crises
     Route: 061
  2. DEXAMETHASONE [Suspect]
     Active Substance: DEXAMETHASONE
     Indication: Glaucomatocyclitic crises
     Route: 061
  3. ACYCLOVIR [Concomitant]
     Active Substance: ACYCLOVIR
     Indication: Product used for unknown indication
     Route: 048
  4. PREDNISONE [Concomitant]
     Active Substance: PREDNISONE
     Indication: Product used for unknown indication
     Route: 048

REACTIONS (4)
  - Iris atrophy [Recovered/Resolved]
  - Condition aggravated [Recovered/Resolved]
  - Intraocular pressure increased [Recovered/Resolved]
  - Product use in unapproved indication [Unknown]
